FAERS Safety Report 7214033-3 (Version None)
Quarter: 2011Q1

REPORT INFORMATION
  Report Type: 
  Country: None (occurrence: None)
  Receive Date: 20110107
  Receipt Date: 20110103
  Transmission Date: 20110831
  Serious: Yes (Hospitalization)
  Sender: FDA-Public Use
  Company Number: US-BIOGENIDEC-2010BI044505

PATIENT
  Age: 69 Year
  Sex: Female
  Weight: 68 kg

DRUGS (3)
  1. AVONEX [Suspect]
     Route: 030
     Dates: start: 20030801
  2. AVONEX [Suspect]
     Indication: MULTIPLE SCLEROSIS
     Route: 030
     Dates: start: 19980101, end: 20030801
  3. THYROID PILL (NOS) [Concomitant]
     Indication: THYROID DISORDER

REACTIONS (1)
  - HEART RATE ABNORMAL [None]
